FAERS Safety Report 25831352 (Version 1)
Quarter: 2025Q3

REPORT INFORMATION
  Report Type: Spontaneous
  Country: US (occurrence: None)
  Receive Date: 20250919
  Receipt Date: 20250919
  Transmission Date: 20251020
  Serious: Yes (Hospitalization)
  Sender: FDA-CTU
  Company Number: None

PATIENT
  Sex: Male

DRUGS (8)
  1. MYCOPHENOLIC ACID [Suspect]
     Active Substance: MYCOPHENOLIC ACID
     Indication: Renal transplant
     Dosage: 720MG BID ORAL ?
     Route: 048
     Dates: start: 20210222
  2. TACROLIMUS [Suspect]
     Active Substance: TACROLIMUS
     Indication: Renal transplant
     Dosage: 1MG BID ORAL ?
     Route: 048
     Dates: start: 20210222
  3. calcium acetate 667mg capsules [Concomitant]
  4. coreg 25mg tablets [Concomitant]
  5. lasix 80mg tablets [Concomitant]
  6. NOVOLOG [Concomitant]
     Active Substance: INSULIN ASPART
  7. briminodine 0.15% eye drops [Concomitant]
  8. ATORVASTATIN CALCIUM [Concomitant]
     Active Substance: ATORVASTATIN CALCIUM

REACTIONS (1)
  - Staphylococcal skin infection [None]
